FAERS Safety Report 9397598 (Version 2)
Quarter: 2013Q3

REPORT INFORMATION
  Report Type: Spontaneous
  Country: JP (occurrence: JP)
  Receive Date: 20130712
  Receipt Date: 20130822
  Transmission Date: 20140515
  Serious: Yes (Hospitalization, Other)
  Sender: FDA-Public Use
  Company Number: JP-B.I. PHARMACEUTICALS,INC./RIDGEFIELD-2013-BI-19884NB

PATIENT
  Sex: 0

DRUGS (1)
  1. MIRAPEX LA [Suspect]
     Route: 048

REACTIONS (2)
  - Fracture [Unknown]
  - Posture abnormal [Unknown]
